FAERS Safety Report 6382378-5 (Version None)
Quarter: 2009Q3

REPORT INFORMATION
  Report Type: 
  Country: None (occurrence: None)
  Receive Date: 20090925
  Receipt Date: 20090922
  Transmission Date: 20100115
  Serious: Yes (Hospitalization)
  Sender: FDA-Public Use
  Company Number: 09-396

PATIENT
  Age: 68 Year
  Sex: Male
  Weight: 117.9352 kg

DRUGS (3)
  1. DIPHENHYDRAMINE 50 MG SOFTGEL, PL DEVELOPMENTS [Suspect]
     Indication: SELF-MEDICATION
     Dosage: 50 MG, ONCE, ORAL
     Route: 048
     Dates: start: 20090803
  2. NORVASK [Concomitant]
  3. FLONAZE [Concomitant]

REACTIONS (1)
  - INFLUENZA LIKE ILLNESS [None]
